FAERS Safety Report 8643139 (Version 4)
Quarter: 2016Q2

REPORT INFORMATION
  Report Type: Spontaneous
  Country: US (occurrence: US)
  Receive Date: 20120629
  Receipt Date: 20160620
  Transmission Date: 20160815
  Serious: Yes (Death, Disabling, Congenital Anomaly, Other)
  Sender: FDA-Public Use
  Company Number: US-PFIZER INC-2012153870

PATIENT
  Sex: Male

DRUGS (3)
  1. IBUPROFEN. [Concomitant]
     Active Substance: IBUPROFEN
     Indication: PAIN
     Dosage: UNK, 2 UNITS
     Route: 064
     Dates: start: 1996
  2. ZOLOFT [Suspect]
     Active Substance: SERTRALINE HYDROCHLORIDE
     Indication: DEPRESSION
     Dosage: 50 MG, 1X/DAY
     Route: 064
     Dates: start: 200502
  3. ZOLOFT [Suspect]
     Active Substance: SERTRALINE HYDROCHLORIDE
     Dosage: 100 MG, 1X/DAY
     Route: 064
     Dates: end: 200510

REACTIONS (18)
  - Atrial septal defect [Fatal]
  - Hypospadias [Unknown]
  - Congenital hydrocephalus [Unknown]
  - Congenital pulmonary hypertension [Fatal]
  - Talipes [Unknown]
  - Congenital anomaly [Fatal]
  - Patent ductus arteriosus [Unknown]
  - Ventricular septal defect [Unknown]
  - Syndactyly [Unknown]
  - Pulmonary vein stenosis [Fatal]
  - Congenital hand malformation [Unknown]
  - Congenital inguinal hernia [Unknown]
  - Neonatal respiratory distress syndrome [Unknown]
  - Premature baby [Fatal]
  - Maternal exposure timing unspecified [Fatal]
  - Bronchopulmonary dysplasia [Fatal]
  - Respiratory failure [Fatal]
  - Congenital tracheomalacia [Unknown]

NARRATIVE: CASE EVENT DATE: 20051230
